FAERS Safety Report 12842884 (Version 1)
Quarter: 2016Q4

REPORT INFORMATION
  Report Type: Spontaneous
  Country: NO (occurrence: NO)
  Receive Date: 20161013
  Receipt Date: 20161013
  Transmission Date: 20170207
  Serious: Yes (Other)
  Sender: FDA-Public Use
  Company Number: NO-009507513-1610NOR003288

PATIENT
  Age: 11 Year
  Sex: Male

DRUGS (1)
  1. AERIUS [Suspect]
     Active Substance: DESLORATADINE
     Indication: SEASONAL ALLERGY
     Dosage: UNK; FORMULATION: MIXTURE
     Route: 048
     Dates: start: 2012

REACTIONS (2)
  - Neoplasm malignant [Unknown]
  - Angina pectoris [Unknown]
